FAERS Safety Report 5475613-9 (Version None)
Quarter: 2007Q4

REPORT INFORMATION
  Report Type: 
  Country: None (occurrence: None)
  Receive Date: 20071003
  Receipt Date: 20070725
  Transmission Date: 20080405
  Serious: No
  Sender: FDA-Public Use
  Company Number: US-KINGPHARMUSA00001-K200700942

PATIENT

DRUGS (10)
  1. SONATA [Suspect]
     Indication: INSOMNIA
     Dosage: 10 MG, QHS
     Route: 048
     Dates: start: 20070712, end: 20070724
  2. TIZANIDINE HCL [Concomitant]
     Dosage: 8 MG, QD
  3. TRAZODONE HCL [Concomitant]
     Dosage: 100 MG, QD
  4. CLONIDINE [Concomitant]
     Dosage: 1 MG, QD
  5. WELLBUTRIN [Concomitant]
     Dosage: 300 MG, QD
  6. BUSPAR [Concomitant]
     Dosage: 30 MG, QD
  7. CORTEF  /00028601/ [Concomitant]
     Dosage: 10 MG, QD IN AM
  8. CORTEF  /00028601/ [Concomitant]
     Dosage: 5 MG, QD MID-DAY
  9. SYNTHROID [Concomitant]
     Dosage: 200 MCG, QD
  10. CENESTIN [Concomitant]
     Dosage: .625 MG, QD

REACTIONS (2)
  - DRUG EFFECT DECREASED [None]
  - MIDDLE INSOMNIA [None]
